FAERS Safety Report 9347525 (Version 3)
Quarter: 2013Q3

REPORT INFORMATION
  Report Type: Spontaneous
  Country: US (occurrence: US)
  Receive Date: 20130614
  Receipt Date: 20130920
  Transmission Date: 20140515
  Serious: Yes (Hospitalization)
  Sender: FDA-Public Use
  Company Number: US-BIOGENIDEC-2013BI051602

PATIENT
  Age: 46 Year
  Sex: Female

DRUGS (7)
  1. TYSABRI [Suspect]
     Indication: MULTIPLE SCLEROSIS
     Route: 042
     Dates: start: 20101206, end: 20130514
  2. ACETAMINOPHEN [Concomitant]
  3. BISACODYL SUPPOSITORY [Concomitant]
  4. AMPYRA [Concomitant]
     Route: 048
  5. OXYBUTYNIN [Concomitant]
     Route: 048
  6. PAXIL [Concomitant]
     Route: 048
  7. MIRALAX [Concomitant]
     Route: 048

REACTIONS (12)
  - Foot operation [Unknown]
  - Cellulitis [Unknown]
  - Abscess limb [Unknown]
  - Renal failure acute [Unknown]
  - Multiple sclerosis relapse [Unknown]
  - Urinary tract infection [Unknown]
  - Muscle spasms [Unknown]
  - Neurogenic bladder [Unknown]
  - Adnexa uteri cyst [Unknown]
  - Lymphoedema [Unknown]
  - Peroneal nerve palsy [Unknown]
  - Pyrexia [Unknown]
